FAERS Safety Report 21468635 (Version 2)
Quarter: 2022Q4

REPORT INFORMATION
  Report Type: Spontaneous
  Country: DE (occurrence: DE)
  Receive Date: 20221017
  Receipt Date: 20221212
  Transmission Date: 20230113
  Serious: Yes (Other)
  Sender: FDA-Public Use
  Company Number: DE-BoehringerIngelheim-2022-BI-197543

PATIENT
  Sex: Male

DRUGS (4)
  1. OFEV [Suspect]
     Active Substance: NINTEDANIB
     Indication: Idiopathic pulmonary fibrosis
     Route: 048
     Dates: start: 201812, end: 201906
  2. Sertralin 100 mg [Concomitant]
     Indication: Product used for unknown indication
  3. Olanzapin 2.5 mg [Concomitant]
     Indication: Product used for unknown indication
     Route: 048
  4. Mucofalk 150 g [Concomitant]
     Indication: Product used for unknown indication
     Dosage: ROUTE OF ADMIN.: SACHET

REACTIONS (2)
  - Schizophrenia [Unknown]
  - Diarrhoea [Unknown]
